FAERS Safety Report 9724818 (Version 1)
Quarter: 2013Q4

REPORT INFORMATION
  Report Type: Spontaneous
  Country: US (occurrence: US)
  Receive Date: 20131202
  Receipt Date: 20131202
  Transmission Date: 20140711
  Serious: No
  Sender: FDA-Public Use
  Company Number: US-PFIZER INC-2013343092

PATIENT
  Age: 40 Year
  Sex: Female
  Weight: 54.42 kg

DRUGS (7)
  1. GABAPENTIN [Suspect]
     Indication: NEUROPATHY PERIPHERAL
     Dosage: 1200 MG, 3X/DAY
     Route: 048
     Dates: start: 2008, end: 201210
  2. GABAPENTIN [Suspect]
     Indication: FIBROMYALGIA
  3. LEXAPRO [Concomitant]
     Dosage: 20 MG, 1X/DAY
  4. MORPHINE [Concomitant]
     Indication: PAIN
     Dosage: 60 MG, 3X/DAY
  5. MORPHINE [Concomitant]
     Indication: INTERVERTEBRAL DISC DISORDER
  6. XANAX [Concomitant]
     Dosage: 1 MG UPTO FOUR TIMES A DAY AS NEEDED
  7. BACLOFEN [Concomitant]
     Dosage: 10 MG, 3X/DAY

REACTIONS (6)
  - Off label use [Unknown]
  - Drug ineffective for unapproved indication [Unknown]
  - Fibromyalgia [Unknown]
  - Feeling abnormal [Unknown]
  - Myalgia [Unknown]
  - Pain [Unknown]
